FAERS Safety Report 7482357-0 (Version None)
Quarter: 2011Q2

REPORT INFORMATION
  Report Type: 
  Country: None (occurrence: None)
  Receive Date: 20110516
  Receipt Date: 20110508
  Transmission Date: 20111010
  Serious: Yes (Other)
  Sender: FDA-Public Use
  Company Number: US-PFIZER INC-2011098829

PATIENT
  Sex: Female
  Weight: 54.422 kg

DRUGS (4)
  1. YAZ [Suspect]
     Indication: CONTRACEPTION
     Dosage: UNK
     Route: 048
     Dates: start: 20080101, end: 20110101
  2. BELLADONNA ALKALOIDS [Concomitant]
     Indication: LACTOSE INTOLERANCE
     Dosage: UNK
     Route: 048
  3. CHANTIX [Suspect]
     Indication: SMOKING CESSATION THERAPY
     Dosage: 1 MG, 2X/DAY
     Route: 048
     Dates: start: 20110401, end: 20110505
  4. YAZ [Suspect]
     Indication: DYSMENORRHOEA

REACTIONS (5)
  - ABDOMINAL DISTENSION [None]
  - TREMOR [None]
  - MENSTRUAL DISORDER [None]
  - DYSMENORRHOEA [None]
  - ACNE [None]
